FAERS Safety Report 5378918-5 (Version None)
Quarter: 2007Q3

REPORT INFORMATION
  Report Type: 
  Country: None (occurrence: None)
  Receive Date: 20070705
  Receipt Date: 20060626
  Transmission Date: 20080115
  Serious: No
  Sender: FDA-Public Use
  Company Number: A0610357A

PATIENT
  Age: 75 Year
  Sex: Female

DRUGS (3)
  1. PARNATE [Suspect]
     Indication: DEPRESSION
     Dosage: 30MG IN THE MORNING
     Route: 048
  2. SUDAFED 12 HOUR [Suspect]
     Dosage: 1TAB UNKNOWN
     Route: 048
  3. SEROQUEL [Concomitant]

REACTIONS (8)
  - ABASIA [None]
  - ANXIETY [None]
  - DRUG INTERACTION [None]
  - MOBILITY DECREASED [None]
  - MUSCULAR WEAKNESS [None]
  - SLEEP APNOEA SYNDROME [None]
  - SOMNOLENCE [None]
  - WEIGHT DECREASED [None]
